FAERS Safety Report 14187880 (Version 2)
Quarter: 2017Q4

REPORT INFORMATION
  Report Type: Spontaneous
  Country: US (occurrence: US)
  Receive Date: 20171114
  Receipt Date: 20171204
  Transmission Date: 20180321
  Serious: Yes (Hospitalization)
  Sender: FDA-Public Use
  Company Number: US-PFIZER INC-2017484429

PATIENT
  Age: 43 Year
  Sex: Male
  Weight: 93.89 kg

DRUGS (3)
  1. RAPAMUNE [Suspect]
     Active Substance: SIROLIMUS
     Indication: PANCREAS TRANSPLANT
     Dosage: THINKS IT WAS 2MG, THINKS IT WAS ONCE A DAY, MAY HAVE BEEN TWICE A DAY
     Dates: start: 200307
  2. PROGRAF [Concomitant]
     Active Substance: TACROLIMUS\TACROLIMUS ANHYDROUS
     Indication: RENAL DISORDER
     Dosage: UNK
     Dates: start: 2003
  3. PROGRAF [Concomitant]
     Active Substance: TACROLIMUS\TACROLIMUS ANHYDROUS
     Indication: IMMUNOSUPPRESSION

REACTIONS (13)
  - Product use in unapproved indication [Unknown]
  - Eating disorder [Unknown]
  - Vomiting [Unknown]
  - Blood glucose increased [Unknown]
  - Pain [Unknown]
  - Fatigue [Unknown]
  - Lethargy [Unknown]
  - Pancreas infection [Recovered/Resolved]
  - Dizziness [Unknown]
  - Incoherent [Unknown]
  - Asthenia [Unknown]
  - Feeling abnormal [Unknown]
  - Movement disorder [Unknown]

NARRATIVE: CASE EVENT DATE: 2009
